FAERS Safety Report 9359774 (Version 1)
Quarter: 2013Q2

REPORT INFORMATION
  Report Type: Spontaneous
  Country: JP (occurrence: JP)
  Receive Date: 20130621
  Receipt Date: 20130621
  Transmission Date: 20140414
  Serious: Yes (Hospitalization, Other)
  Sender: FDA-Public Use
  Company Number: JP-ROCHE-1229245

PATIENT
  Age: 65 Year
  Sex: Female
  Weight: 45 kg

DRUGS (9)
  1. AVASTIN [Suspect]
     Indication: RECTAL CANCER
     Route: 041
     Dates: start: 20121206, end: 20130422
  2. AVASTIN [Suspect]
     Indication: RECTAL CANCER
     Route: 041
     Dates: start: 20130422
  3. XELODA [Suspect]
     Indication: RECTAL CANCER
     Dosage: STRENGTH : 300, DOSAGE IS UNCERTAIN.
     Route: 048
     Dates: start: 20121206, end: 20130422
  4. OXALIPLATIN [Concomitant]
     Indication: RECTAL CANCER
     Dosage: DOSAGE IS UNCERTAIN.
     Route: 041
     Dates: start: 20121206, end: 20130422
  5. IRINOTECAN HYDROCHLORIDE [Concomitant]
     Indication: RECTAL CANCER
     Dosage: DOSAGE IS UNCERTAIN.
     Route: 041
     Dates: start: 20130422
  6. 5-FU [Concomitant]
     Indication: RECTAL CANCER
     Dosage: DOSAGE IS UNCERTAIN.
     Route: 040
     Dates: start: 20130422
  7. 5-FU [Concomitant]
     Indication: RECTAL CANCER
     Dosage: DOSAGE IS UNCERTAIN.
     Route: 041
     Dates: start: 20130422
  8. LEVOFOLINATE [Concomitant]
     Indication: RECTAL CANCER
     Dosage: DOSAGE IS UNCERTAIN.
     Route: 041
     Dates: start: 20130422
  9. LOXONIN [Concomitant]
     Indication: PAIN
     Dosage: DOSAGE IS UNCERTAIN.
     Route: 048
     Dates: start: 20130508

REACTIONS (1)
  - Cerebral haemorrhage [Recovered/Resolved with Sequelae]
